FAERS Safety Report 6317794-0 (Version None)
Quarter: 2009Q3

REPORT INFORMATION
  Report Type: 
  Country: None (occurrence: None)
  Receive Date: 20090821
  Receipt Date: 20090601
  Transmission Date: 20100115
  Serious: No
  Sender: FDA-Public Use
  Company Number: US-BAYER-200922433NA

PATIENT
  Age: 16 Year
  Sex: Female
  Weight: 55 kg

DRUGS (5)
  1. YAZ [Suspect]
     Indication: CONTRACEPTION
     Route: 048
     Dates: start: 20081201
  2. ABILIFY [Suspect]
  3. ZOLOFT [Concomitant]
  4. CENTRUM [Concomitant]
  5. CALCIUM [Concomitant]

REACTIONS (2)
  - COGNITIVE DISORDER [None]
  - METRORRHAGIA [None]
